FAERS Safety Report 21892255 (Version 1)
Quarter: 2023Q1

REPORT INFORMATION
  Report Type: Spontaneous
  Country: ES (occurrence: ES)
  Receive Date: 20230120
  Receipt Date: 20230120
  Transmission Date: 20230417
  Serious: Yes (Hospitalization, Other)
  Sender: FDA-Public Use
  Company Number: ES-GLAXOSMITHKLINE-ES2022EME181380

PATIENT
  Age: 50 Year
  Sex: Female

DRUGS (2)
  1. FLUOXETINE [Suspect]
     Active Substance: FLUOXETINE HYDROCHLORIDE
     Indication: Product used for unknown indication
     Dosage: 20 MG
     Route: 065
  2. BUPROPION HYDROCHLORIDE [Suspect]
     Active Substance: BUPROPION HYDROCHLORIDE
     Indication: Product used for unknown indication
     Dosage: 2 DF, QD
     Route: 065
     Dates: start: 20221101

REACTIONS (9)
  - Erythema multiforme [Unknown]
  - Heart rate increased [Unknown]
  - Feeding disorder [Unknown]
  - Wound [Unknown]
  - Oropharyngeal plaque [Unknown]
  - Stomatitis [Unknown]
  - Restlessness [Unknown]
  - Balance disorder [Unknown]
  - Nervousness [Unknown]
